FAERS Safety Report 11753040 (Version 2)
Quarter: 2015Q4

REPORT INFORMATION
  Report Type: Spontaneous
  Country: TW (occurrence: TW)
  Receive Date: 20151119
  Receipt Date: 20151216
  Transmission Date: 20160304
  Serious: Yes (Hospitalization, Other)
  Sender: FDA-Public Use
  Company Number: TW-AMGEN-TWNSP2015121967

PATIENT
  Age: 53 Year
  Sex: Female

DRUGS (5)
  1. ENBREL [Suspect]
     Active Substance: ETANERCEPT
     Indication: RHEUMATOID ARTHRITIS
     Dosage: 25 MG, 2X/WEEK
     Route: 058
     Dates: start: 20120326
  2. TEARS NATURALE                     /00134201/ [Concomitant]
     Dosage: UNK, 4X/DAY OU
     Route: 047
     Dates: end: 20151120
  3. AZATHIOPRINE 50PCH [Suspect]
     Active Substance: AZATHIOPRINE
     Indication: PRODUCT USED FOR UNKNOWN INDICATION
     Dosage: 1 DF, 2X/DAY
     Route: 048
  4. RITUXIMAB [Suspect]
     Active Substance: RITUXIMAB
     Indication: PRODUCT USED FOR UNKNOWN INDICATION
     Dosage: 500 MG, UNK
     Route: 065
     Dates: start: 20140921
  5. ARHEUMA [Concomitant]
     Dosage: 20 MG, 1X/DAY
     Route: 048
     Dates: end: 20151120

REACTIONS (8)
  - Sepsis [Unknown]
  - Tubulointerstitial nephritis [Unknown]
  - Glomerulosclerosis [Unknown]
  - Leukopenia [Unknown]
  - Febrile neutropenia [Recovered/Resolved]
  - Proteinuria [Unknown]
  - Glomerulonephritis chronic [Unknown]
  - Pancytopenia [Unknown]

NARRATIVE: CASE EVENT DATE: 20140221
